FAERS Safety Report 7330151-3 (Version None)
Quarter: 2011Q1

REPORT INFORMATION
  Report Type: 
  Country: None (occurrence: None)
  Receive Date: 20110303
  Receipt Date: 20110216
  Transmission Date: 20110831
  Serious: Yes (Death)
  Sender: FDA-Public Use
  Company Number: FR-GENENTECH-314258

PATIENT
  Sex: Male

DRUGS (16)
  1. FLUDARA [Suspect]
     Indication: MONOCLONAL GAMMOPATHY
     Dosage: UNK
     Route: 048
     Dates: start: 20090116, end: 20090120
  2. FLUDARA [Suspect]
     Dosage: UNK
     Route: 048
     Dates: start: 20090323, end: 20090327
  3. MOPRAL [Concomitant]
     Indication: PRODUCT USED FOR UNKNOWN INDICATION
     Dosage: UNK
  4. MEPRONIZINE [Concomitant]
     Indication: PRODUCT USED FOR UNKNOWN INDICATION
     Dosage: UNK
  5. KARDEGIC [Concomitant]
     Indication: PRODUCT USED FOR UNKNOWN INDICATION
     Dosage: UNK
  6. ACETAMINOPHEN [Concomitant]
     Indication: PRODUCT USED FOR UNKNOWN INDICATION
     Dosage: UNK
  7. FLUDARA [Suspect]
     Dosage: UNK
     Route: 048
     Dates: start: 20090216, end: 20090220
  8. FLUDARA [Suspect]
     Dosage: UNK
     Route: 048
     Dates: start: 20090420, end: 20090424
  9. AMLOR [Concomitant]
     Indication: PRODUCT USED FOR UNKNOWN INDICATION
     Dosage: UNK
  10. GLUCOPHAGE [Concomitant]
     Indication: PRODUCT USED FOR UNKNOWN INDICATION
     Dosage: UNK
  11. MABTHERA [Suspect]
     Indication: MONOCLONAL GAMMOPATHY
     Dosage: 375 MG, UNK
     Route: 042
     Dates: start: 20080523, end: 20100613
  12. TEGELINE [Concomitant]
     Indication: DEMYELINATING POLYNEUROPATHY
     Dosage: UNK
     Route: 042
  13. COVERSYL [Concomitant]
     Indication: PRODUCT USED FOR UNKNOWN INDICATION
     Dosage: UNK
  14. NEURONTIN [Concomitant]
     Indication: PRODUCT USED FOR UNKNOWN INDICATION
     Dosage: UNK
  15. ZYMA-D2 [Concomitant]
     Indication: PRODUCT USED FOR UNKNOWN INDICATION
     Dosage: UNK
  16. XATRAL [Concomitant]
     Indication: PRODUCT USED FOR UNKNOWN INDICATION
     Dosage: UNK

REACTIONS (2)
  - ACUTE MYELOID LEUKAEMIA [None]
  - ECCHYMOSIS [None]
